FAERS Safety Report 23558195 (Version 2)
Quarter: 2024Q1

REPORT INFORMATION
  Report Type: Report from Study
  Country: IT (occurrence: None)
  Receive Date: 20240223
  Receipt Date: 20240226
  Transmission Date: 20240409
  Serious: Yes (Death, Other)
  Sender: FDA-Public Use
  Company Number: 2024A016751

PATIENT
  Age: 66 Year
  Weight: 77 kg

DRUGS (1)
  1. DURVALUMAB [Suspect]
     Active Substance: DURVALUMAB
     Indication: Biliary tract disorder
     Dosage: 1500 MG
     Route: 042
     Dates: start: 20230510, end: 20230725

REACTIONS (3)
  - Malignant neoplasm progression [Unknown]
  - Metastases to peritoneum [Unknown]
  - Cholangiocarcinoma [Fatal]

NARRATIVE: CASE EVENT DATE: 20230802
